FAERS Safety Report 5290552-4 (Version None)
Quarter: 2007Q2

REPORT INFORMATION
  Report Type: 
  Country: None (occurrence: None)
  Receive Date: 20070405
  Receipt Date: 20070405
  Transmission Date: 20071010
  Serious: Yes (Hospitalization)
  Sender: FDA-Public Use
  Company Number: None

PATIENT
  Sex: Female
  Weight: 59 kg

DRUGS (5)
  1. TEMODAR [Suspect]
     Indication: MALIGNANT MELANOMA
     Dosage: 160MG PO X 7 DAYS EVERY 14 DAYS
  2. SUTENT [Suspect]
     Indication: MALIGNANT MELANOMA
     Dosage: 25 MG PO FOR 21 DAYS REPEAT EVERY 28 DAYS
     Route: 048
  3. ZOFRAN [Concomitant]
  4. LOTREL [Concomitant]
  5. METAMUCIL [Concomitant]

REACTIONS (1)
  - DIVERTICULITIS [None]
